FAERS Safety Report 21190568 (Version 1)
Quarter: 2022Q3

REPORT INFORMATION
  Report Type: Spontaneous
  Country: US (occurrence: None)
  Receive Date: 20220809
  Receipt Date: 20220809
  Transmission Date: 20221027
  Serious: Yes (Hospitalization)
  Sender: FDA-Public Use
  Company Number: None

PATIENT

DRUGS (1)
  1. DEFEROXAMINE MESYLATE [Suspect]
     Active Substance: DEFEROXAMINE MESYLATE
     Indication: Thalassaemia sickle cell
     Dosage: FREQUENCY : WEEKLY;?
     Route: 058
     Dates: start: 202112

REACTIONS (1)
  - Hospitalisation [None]
